FAERS Safety Report 5196762-9 (Version None)
Quarter: 2006Q4

REPORT INFORMATION
  Report Type: 
  Country: None (occurrence: None)
  Receive Date: 20061227
  Receipt Date: 20061211
  Transmission Date: 20070319
  Serious: Yes (Other)
  Sender: FDA-Public Use
  Company Number: 2006153085

PATIENT
  Sex: Female
  Weight: 61.2356 kg

DRUGS (6)
  1. SOLU-MEDROL [Suspect]
     Indication: MULTIPLE SCLEROSIS
     Dosage: 1 GRAM (1 GRAM, 1 IN 1D), INTRAVENOUS
     Route: 042
     Dates: start: 19940101, end: 19940101
  2. INTERFERON BETA (INTERFERON BETA) [Suspect]
     Indication: MULTIPLE SCLEROSIS
  3. INTERFERON BETA-1A (INTERFERON BETA) [Suspect]
     Indication: MULTIPLE SCLEROSIS
  4. INTERFERON (INTERFERON) [Suspect]
     Indication: MULTIPLE SCLEROSIS
  5. MITOXANTRONE [Suspect]
     Indication: MULTIPLE SCLEROSIS
  6. ALL OTHER THERAPEUTIC PRODUCTS (ALL OTHER THERAPEUTIC PRODUCTS) [Suspect]
     Indication: MULTIPLE SCLEROSIS
     Dates: start: 20060101, end: 20060101

REACTIONS (18)
  - ALOPECIA [None]
  - BLISTER [None]
  - BODY HEIGHT DECREASED [None]
  - COLITIS [None]
  - DISEASE PROGRESSION [None]
  - DRUG INEFFECTIVE [None]
  - FEELING ABNORMAL [None]
  - HYPOAESTHESIA [None]
  - INJECTION SITE REACTION [None]
  - MEMORY IMPAIRMENT [None]
  - MULTIPLE SCLEROSIS [None]
  - ORAL MUCOSAL BLISTERING [None]
  - PLATELET COUNT INCREASED [None]
  - SENSORY DISTURBANCE [None]
  - SKIN ULCER [None]
  - STEM CELL TRANSPLANT [None]
  - VIRAL INFECTION [None]
  - WEIGHT DECREASED [None]
